FAERS Safety Report 5236556-9 (Version None)
Quarter: 2007Q1

REPORT INFORMATION
  Report Type: 
  Country: None (occurrence: None)
  Receive Date: 20070208
  Receipt Date: 20070129
  Transmission Date: 20070707
  Serious: Yes (Hospitalization)
  Sender: FDA-Public Use
  Company Number: 2007BI002006

PATIENT
  Age: 62 Year
  Sex: Female

DRUGS (1)
  1. AVONEX [Suspect]
     Indication: MULTIPLE SCLEROSIS
     Dosage: 30 UG; QW; IM
     Route: 030
     Dates: start: 20030710

REACTIONS (5)
  - DIARRHOEA [None]
  - DYSPNOEA [None]
  - INFLUENZA LIKE ILLNESS [None]
  - RESPIRATORY TRACT INFECTION VIRAL [None]
  - URINARY TRACT INFECTION [None]
